FAERS Safety Report 24593215 (Version 1)
Quarter: 2024Q4

REPORT INFORMATION
  Report Type: Spontaneous
  Country: US (occurrence: US)
  Receive Date: 20241108
  Receipt Date: 20241108
  Transmission Date: 20250115
  Serious: No
  Sender: MYLAN
  Company Number: US-MYLANLABS-2024M1098270

PATIENT
  Age: 79 Year
  Sex: Female
  Weight: 79.38 kg

DRUGS (1)
  1. TYRVAYA [Suspect]
     Active Substance: VARENICLINE TARTRATE
     Indication: Product used for unknown indication
     Dosage: UNK
     Route: 045
     Dates: start: 20241024, end: 20241024

REACTIONS (1)
  - Rhinalgia [Unknown]

NARRATIVE: CASE EVENT DATE: 20241024
